FAERS Safety Report 8739617 (Version 2)
Quarter: 2012Q4

REPORT INFORMATION
  Report Type: Report from Study
  Country: FR (occurrence: FR)
  Receive Date: 20120823
  Receipt Date: 20121221
  Transmission Date: 20130627
  Serious: Yes (Hospitalization)
  Sender: FDA-Public Use
  Company Number: FR-VIIV HEALTHCARE LIMITED-B0824462A

PATIENT
  Age: 52 Year
  Sex: Male
  Weight: 86 kg

DRUGS (5)
  1. MARAVIROC [Suspect]
     Indication: HIV INFECTION
     Dosage: 300MG Twice per day
     Route: 048
     Dates: start: 20120223
  2. RALTEGRAVIR [Suspect]
     Indication: HIV INFECTION
     Dosage: 400MG Twice per day
     Route: 048
     Dates: start: 20120223
  3. COOLMETEC [Suspect]
     Indication: HYPERTENSION
     Dosage: 20MG Per day
     Dates: start: 20120623
  4. VIMPAT [Concomitant]
     Indication: NEUROPATHY PERIPHERAL
     Dosage: 100MG Twice per day
     Dates: start: 20120618
  5. UVEDOSE [Concomitant]
     Indication: VITAMIN D DEFICIENCY
     Dosage: 2MG Per day
     Dates: start: 20090921

REACTIONS (1)
  - Malaise [Recovered/Resolved]
